FAERS Safety Report 5114590-7 (Version None)
Quarter: 2006Q3

REPORT INFORMATION
  Report Type: 
  Country: None (occurrence: None)
  Receive Date: 20060922
  Receipt Date: 20060922
  Transmission Date: 20061208
  Serious: Yes (Hospitalization)
  Sender: FDA-Public Use
  Company Number: None

PATIENT
  Age: 80 Year
  Sex: Male
  Weight: 96.1626 kg

DRUGS (9)
  1. LISINOPRIL [Suspect]
     Indication: HYPERTENSION
     Dosage: 40 MG  BID  PO
     Route: 048
     Dates: start: 20060309, end: 20060910
  2. ALPRAZOLAM [Suspect]
     Indication: ANXIETY
     Dosage: 0.25 MG   DAILY PRN    PO
     Route: 048
     Dates: start: 20050829, end: 20060910
  3. ISOSORBIDE [Concomitant]
  4. METFORMIN HCL [Concomitant]
  5. NAPROXEN [Concomitant]
  6. NTG SL [Concomitant]
  7. SERTRALINE [Concomitant]
  8. TRAZODONE HCL [Concomitant]
  9. METOPROLOL TARTRATE [Concomitant]

REACTIONS (4)
  - DIZZINESS [None]
  - HYPERHIDROSIS [None]
  - SYNCOPE [None]
  - VISUAL DISTURBANCE [None]
